FAERS Safety Report 21504020 (Version 2)
Quarter: 2022Q4

REPORT INFORMATION
  Report Type: Other
  Country: US (occurrence: None)
  Receive Date: 20221025
  Receipt Date: 20221028
  Transmission Date: 20230113
  Serious: No
  Sender: FDA-Public Use
  Company Number: US-ROCHE-3205368

PATIENT
  Age: 13 Year
  Sex: Male
  Weight: 56.2 kg

DRUGS (6)
  1. NUTROPIN [Suspect]
     Active Substance: SOMATROPIN
     Indication: Growth hormone deficiency
     Dosage: 6XWEEKL
     Route: 058
  2. NUTROPIN [Suspect]
     Active Substance: SOMATROPIN
  3. ANASTROZOLE [Concomitant]
     Active Substance: ANASTROZOLE
  4. BENADRYL [Concomitant]
     Active Substance: DIPHENHYDRAMINE HYDROCHLORIDE
  5. EPIPEN [Concomitant]
     Active Substance: EPINEPHRINE
  6. ZYRTEC [Concomitant]
     Active Substance: CETIRIZINE HYDROCHLORIDE

REACTIONS (1)
  - Joint dislocation [Unknown]
